FAERS Safety Report 14629442 (Version 1)
Quarter: 2018Q1

REPORT INFORMATION
  Report Type: Spontaneous
  Country: US (occurrence: US)
  Receive Date: 20180312
  Receipt Date: 20180312
  Transmission Date: 20180509
  Serious: Yes (Other)
  Sender: FDA-Public Use
  Company Number: None

PATIENT
  Age: 21 Year
  Sex: Male
  Weight: 130.5 kg

DRUGS (4)
  1. PAROXETINE. [Suspect]
     Active Substance: PAROXETINE
     Indication: DEPRESSION
     Route: 048
  2. LORAZEPAM. [Concomitant]
     Active Substance: LORAZEPAM
  3. PRAZOSIN. [Concomitant]
     Active Substance: PRAZOSIN
  4. PAROXETINE. [Suspect]
     Active Substance: PAROXETINE
     Indication: ANXIETY
     Route: 048

REACTIONS (9)
  - Depression [None]
  - Therapy cessation [None]
  - Anxiety [None]
  - Panic attack [None]
  - Insomnia [None]
  - Dizziness [None]
  - Fatigue [None]
  - Insurance issue [None]
  - Headache [None]

NARRATIVE: CASE EVENT DATE: 20180220
